FAERS Safety Report 19653241 (Version 1)
Quarter: 2021Q3

REPORT INFORMATION
  Report Type: Report from Study
  Country: CA (occurrence: CA)
  Receive Date: 20210803
  Receipt Date: 20210803
  Transmission Date: 20211014
  Serious: Yes (Other)
  Sender: FDA-Public Use
  Company Number: CA-PFIZER INC-202100930567

PATIENT
  Sex: Female
  Weight: 77 kg

DRUGS (25)
  1. RITUXIMAB. [Suspect]
     Active Substance: RITUXIMAB
     Indication: PEMPHIGOID
     Dosage: 1000 MG, 1 EVERY 15 DAYS
     Route: 042
  2. ASPIRIN [ACETYLSALICYLIC ACID] [Concomitant]
     Active Substance: ASPIRIN
  3. PANTOPRAZOLE [Concomitant]
     Active Substance: PANTOPRAZOLE
  4. TYLENOL [Concomitant]
     Active Substance: ACETAMINOPHEN
     Indication: PREMEDICATION
     Dosage: 650 MG
     Route: 048
  5. VALACYCLOVIR [Concomitant]
     Active Substance: VALACYCLOVIR HYDROCHLORIDE
  6. ALISKIREN FUMARATE [Concomitant]
     Active Substance: ALISKIREN HEMIFUMARATE
  7. MINOCYCLINE [Concomitant]
     Active Substance: MINOCYCLINE HYDROCHLORIDE
     Dosage: 100 MG, 1 EVERY 1 DAYS
     Route: 048
  8. TEMAZEPAM. [Concomitant]
     Active Substance: TEMAZEPAM
  9. LOTEMAX [Concomitant]
     Active Substance: LOTEPREDNOL ETABONATE
     Route: 065
  10. METHYLPREDNISOLONE SODIUM SUCCINATE. [Concomitant]
     Active Substance: METHYLPREDNISOLONE SODIUM SUCCINATE
     Indication: PREMEDICATION
     Dosage: 100 MG
     Route: 042
  11. BENADRYL [Concomitant]
     Active Substance: DIPHENHYDRAMINE HYDROCHLORIDE
     Indication: PREMEDICATION
     Dosage: 50 MG
     Route: 048
  12. ELTROXIN [Concomitant]
     Active Substance: LEVOTHYROXINE
  13. PROLIA [Concomitant]
     Active Substance: DENOSUMAB
  14. SULFASALAZINE. [Concomitant]
     Active Substance: SULFASALAZINE
     Indication: VISION BLURRED
  15. SULFASALAZINE. [Concomitant]
     Active Substance: SULFASALAZINE
     Indication: EYE PAIN
  16. MOMETASONE FUROATE. [Concomitant]
     Active Substance: MOMETASONE FUROATE
     Route: 067
  17. PANTOPRAZOLE MAGNESIUM [Concomitant]
     Active Substance: PANTOPRAZOLE MAGNESIUM
  18. PIMECROLIMUS. [Concomitant]
     Active Substance: PIMECROLIMUS
     Route: 065
  19. RITUXIMAB. [Suspect]
     Active Substance: RITUXIMAB
     Indication: OCULAR PEMPHIGOID
  20. TOBRADEX [Concomitant]
     Active Substance: DEXAMETHASONE\TOBRAMYCIN
     Route: 065
  21. LIPITOR [Concomitant]
     Active Substance: ATORVASTATIN CALCIUM
     Route: 065
  22. PREDNISONE. [Concomitant]
     Active Substance: PREDNISONE
  23. CARBOXYMETHYLCELLULOSE SODIUM. [Concomitant]
     Active Substance: CARBOXYMETHYLCELLULOSE SODIUM
  24. SPIRONOLACTONE. [Concomitant]
     Active Substance: SPIRONOLACTONE
  25. SULFASALAZINE. [Concomitant]
     Active Substance: SULFASALAZINE
     Indication: VISUAL ACUITY REDUCED

REACTIONS (1)
  - Erythema multiforme [Recovered/Resolved]
